FAERS Safety Report 5954223-0 (Version None)
Quarter: 2008Q4

REPORT INFORMATION
  Report Type: 
  Country: None (occurrence: None)
  Receive Date: 20081117
  Receipt Date: 20081112
  Transmission Date: 20090506
  Serious: Yes (Hospitalization)
  Sender: FDA-Public Use
  Company Number: DE-WYE-G02459908

PATIENT
  Sex: Female
  Weight: 90 kg

DRUGS (1)
  1. TREVILOR RETARD [Suspect]
     Dosage: 6 CAPSULES (OVERDOSE AMOUNT 900 MG)
     Route: 048
     Dates: start: 20081028, end: 20081028

REACTIONS (2)
  - INTENTIONAL OVERDOSE [None]
  - SUICIDE ATTEMPT [None]
